FAERS Safety Report 17584385 (Version 1)
Quarter: 2020Q1

REPORT INFORMATION
  Report Type: Spontaneous
  Country: US (occurrence: US)
  Receive Date: 20200326
  Receipt Date: 20200326
  Transmission Date: 20200409
  Serious: No
  Sender: FDA-Public Use
  Company Number: US-PFIZER INC-2020122444

PATIENT
  Age: 88 Year
  Sex: Female
  Weight: 77 kg

DRUGS (3)
  1. AMLODIPINE BESILATE [Suspect]
     Active Substance: AMLODIPINE BESYLATE
     Dosage: 7.5 MG, DAILY(1.5 TABLETS(7.5MG) BY MOUTH NIGHTLY)
     Route: 048
     Dates: start: 202003, end: 20200315
  2. LOSARTAN. [Concomitant]
     Active Substance: LOSARTAN
     Indication: HYPERTENSION
     Dosage: 100 MG, DAILY(100 MG TABLET TAKEN BY MOUTH ONCE EVERY MORNING)
     Route: 048
  3. AMLODIPINE BESILATE [Suspect]
     Active Substance: AMLODIPINE BESYLATE
     Indication: HYPERTENSION
     Dosage: 5 MG, DAILY(1 TABLET (5MG) BY MOUTH NIGHTLY)
     Route: 048
     Dates: start: 202003, end: 202003

REACTIONS (1)
  - Oedema peripheral [Not Recovered/Not Resolved]

NARRATIVE: CASE EVENT DATE: 20200315
